FAERS Safety Report 4337973-1 (Version None)
Quarter: 2004Q2

REPORT INFORMATION
  Report Type: 
  Country: None (occurrence: None)
  Receive Date: 20040407
  Receipt Date: 20040318
  Transmission Date: 20050107
  Serious: Yes (Hospitalization)
  Sender: FDA-Public Use
  Company Number: AU_040307572

PATIENT
  Age: 30 Year
  Sex: Female

DRUGS (1)
  1. CECLOR [Suspect]
     Indication: INFLUENZA
     Dosage: 375 MG
     Dates: start: 20040309, end: 20040309

REACTIONS (1)
  - HYPERSENSITIVITY [None]
